FAERS Safety Report 8272211-9 (Version None)
Quarter: 2012Q2

REPORT INFORMATION
  Report Type: 
  Country: None (occurrence: None)
  Receive Date: 20120410
  Receipt Date: 20120404
  Transmission Date: 20120825
  Serious: Yes (Hospitalization)
  Sender: FDA-Public Use
  Company Number: JP-SP-2012-03754

PATIENT
  Age: 91 Year
  Sex: Male

DRUGS (1)
  1. IMMUCYST [Suspect]
     Indication: PRODUCT USED FOR UNKNOWN INDICATION
     Route: 043
     Dates: start: 20101001

REACTIONS (5)
  - REITER'S SYNDROME [None]
  - OFF LABEL USE [None]
  - ARTHRALGIA [None]
  - BACK PAIN [None]
  - PYREXIA [None]
